FAERS Safety Report 22683796 (Version 9)
Quarter: 2024Q1

REPORT INFORMATION
  Report Type: Report from Study
  Country: AR (occurrence: AR)
  Receive Date: 20230708
  Receipt Date: 20240304
  Transmission Date: 20240410
  Serious: Yes (Hospitalization, Other)
  Sender: FDA-Public Use
  Company Number: AR-002147023-PHHY2017AR088539

PATIENT
  Age: 65 Year
  Sex: Male

DRUGS (3)
  1. COSENTYX [Suspect]
     Active Substance: SECUKINUMAB
     Indication: Psoriasis
     Dosage: 300 MG, QMO
     Route: 058
     Dates: start: 20160920
  2. COSENTYX [Suspect]
     Active Substance: SECUKINUMAB
     Dosage: UNK UNK, QMO
     Route: 058
     Dates: start: 2016
  3. COSENTYX [Suspect]
     Active Substance: SECUKINUMAB
     Dosage: 300 MG, QMO
     Route: 065
     Dates: start: 20170414, end: 202305

REACTIONS (15)
  - Urinary tract infection [Unknown]
  - Renal abscess [Unknown]
  - Pyrexia [Unknown]
  - Chills [Unknown]
  - Malaise [Unknown]
  - Hypertension [Unknown]
  - Illness [Unknown]
  - Decreased immune responsiveness [Unknown]
  - Renal cyst [Unknown]
  - Kidney infection [Unknown]
  - Anaemia [Unknown]
  - Psoriasis [Unknown]
  - Diabetes mellitus [Unknown]
  - Weight decreased [Unknown]
  - Irritability [Unknown]

NARRATIVE: CASE EVENT DATE: 20170606
